FAERS Safety Report 8571679-8 (Version None)
Quarter: 2012Q3

REPORT INFORMATION
  Report Type: 
  Country: None (occurrence: None)
  Receive Date: 20120806
  Receipt Date: 20120801
  Transmission Date: 20120928
  Serious: No
  Sender: FDA-Public Use
  Company Number: US-TEVA-351860USA

PATIENT
  Sex: Female
  Weight: 53.572 kg

DRUGS (2)
  1. TOPAMAX [Concomitant]
     Indication: MIGRAINE
  2. PLAN B ONE-STEP [Suspect]
     Indication: POST COITAL CONTRACEPTION
     Dosage: 1.5 MILLIGRAM DAILY;
     Route: 048
     Dates: start: 20120731, end: 20120731

REACTIONS (2)
  - MIGRAINE [None]
  - DEPRESSED MOOD [None]
